FAERS Safety Report 8389822-2 (Version None)
Quarter: 2012Q2

REPORT INFORMATION
  Report Type: 
  Country: None (occurrence: None)
  Receive Date: 20120524
  Receipt Date: 20120524
  Transmission Date: 20120825
  Serious: Yes (Death, Hospitalization)
  Sender: FDA-Public Use
  Company Number: None

PATIENT
  Sex: Male
  Weight: 8.8 kg

DRUGS (3)
  1. METHOTREXATE [Suspect]
     Dosage: 80 MG
     Dates: end: 20120417
  2. MERCAPTOPURINE [Suspect]
     Dosage: 1890 MG
     Dates: end: 20120423
  3. VINCRISTINE SULFATE [Suspect]
     Dosage: 1.2 MG
     Dates: end: 20120327

REACTIONS (10)
  - CYTOMEGALOVIRUS COLITIS [None]
  - PARAINFLUENZAE VIRUS INFECTION [None]
  - VOMITING [None]
  - CYTOMEGALOVIRUS VIRAEMIA [None]
  - PNEUMONIA CYTOMEGALOVIRAL [None]
  - PNEUMOCYSTIS JIROVECI INFECTION [None]
  - DRUG INTOLERANCE [None]
  - DIARRHOEA [None]
  - DIARRHOEA HAEMORRHAGIC [None]
  - LOWER RESPIRATORY TRACT INFECTION [None]
